FAERS Safety Report 17017785 (Version 8)
Quarter: 2021Q3

REPORT INFORMATION
  Report Type: Spontaneous
  Country: US (occurrence: US)
  Receive Date: 20191111
  Receipt Date: 20210823
  Transmission Date: 20211014
  Serious: No
  Sender: FDA-Public Use
  Company Number: US-PFIZER INC-2019483548

PATIENT
  Age: 71 Year
  Sex: Male
  Weight: 68 kg

DRUGS (4)
  1. INLYTA [Suspect]
     Active Substance: AXITINIB
     Dosage: 7 MG, UNK ( 30?DAY SUPPLY)
  2. INLYTA [Suspect]
     Active Substance: AXITINIB
     Dosage: 5 MG, 2X/DAY
  3. INLYTA [Suspect]
     Active Substance: AXITINIB
     Indication: RENAL CANCER
     Dosage: 5 MG, UNK
  4. INLYTA [Suspect]
     Active Substance: AXITINIB
     Dosage: 5 MG, 1X/DAY

REACTIONS (3)
  - Off label use [Unknown]
  - Neoplasm progression [Unknown]
  - Dysphonia [Not Recovered/Not Resolved]
